FAERS Safety Report 9734617 (Version 2)
Quarter: 2013Q4

REPORT INFORMATION
  Report Type: Spontaneous
  Country: NO (occurrence: NO)
  Receive Date: 20131206
  Receipt Date: 20131216
  Transmission Date: 20140711
  Serious: Yes (Hospitalization, Other)
  Sender: FDA-Public Use
  Company Number: NO-AMGEN-NORSP2013085591

PATIENT
  Age: 64 Year
  Sex: Female

DRUGS (2)
  1. ENBREL [Suspect]
     Indication: RHEUMATOID ARTHRITIS
     Dosage: 25 MG, 2X/WEEK
     Route: 058
  2. METHOTREXAT                        /00113801/ [Concomitant]
     Indication: RHEUMATOID ARTHRITIS
     Dosage: 20 MG, WEEKLY
     Route: 048

REACTIONS (9)
  - Confusional state [Recovering/Resolving]
  - Delirium [Recovering/Resolving]
  - Cerebral ischaemia [Recovered/Resolved]
  - Arthropathy [Unknown]
  - Hypertension [Unknown]
  - Dizziness [Recovered/Resolved]
  - Haemoglobin decreased [Unknown]
  - Thyroxine free increased [Unknown]
  - Mean cell volume increased [Unknown]
